FAERS Safety Report 8887197 (Version 1)
Quarter: 2012Q4

REPORT INFORMATION
  Report Type: 
  Country: BR (occurrence: BR)
  Receive Date: 20121105
  Receipt Date: 20121105
  Transmission Date: 20130627
  Serious: Yes (Other)
  Sender: FDA-Public Use
  Company Number: PHHY2012BR099406

PATIENT
  Age: 84 Year
  Sex: Female

DRUGS (2)
  1. EXELON [Suspect]
     Indication: SENILE DEMENTIA
     Dosage: 4.6 mg/24 (9mg/5cm2 per day)
     Route: 062
  2. EXELON [Suspect]
     Dosage: 9.5 mg/24h (18mg/10cm2 per day)
     Route: 062

REACTIONS (5)
  - Subcutaneous emphysema [Unknown]
  - Acne [Unknown]
  - Seborrhoea [Unknown]
  - Skin disorder [Unknown]
  - Alopecia [Unknown]
